FAERS Safety Report 5737469-6 (Version None)
Quarter: 2008Q2

REPORT INFORMATION
  Report Type: 
  Country: None (occurrence: None)
  Receive Date: 20080514
  Receipt Date: 20080408
  Transmission Date: 20081010
  Serious: No
  Sender: FDA-Public Use
  Company Number: US-BRISTOL-MYERS SQUIBB COMPANY-14143374

PATIENT
  Sex: Female

DRUGS (4)
  1. IXEMPRA KIT [Suspect]
     Dosage: INFUSED OVER 30 MINUTES INSTEAD OF 3 HRS
     Route: 042
  2. BENADRYL [Concomitant]
     Indication: PREMEDICATION
  3. ZANTAC [Concomitant]
     Indication: PREMEDICATION
  4. STEROIDS [Concomitant]
     Indication: PREMEDICATION

REACTIONS (2)
  - DRUG ADMINISTRATION ERROR [None]
  - FATIGUE [None]
